FAERS Safety Report 14744452 (Version 1)
Quarter: 2018Q2

REPORT INFORMATION
  Report Type: Spontaneous
  Country: US (occurrence: US)
  Receive Date: 20180411
  Receipt Date: 20180411
  Transmission Date: 20180711
  Serious: Yes (Death)
  Sender: FDA-Public Use
  Company Number: US-ABBVIE-18P-163-2317698-00

PATIENT
  Sex: Male

DRUGS (1)
  1. TRIDIONE [Suspect]
     Active Substance: TRIMETHADIONE
     Indication: SEIZURE
     Route: 048
     Dates: start: 199609

REACTIONS (1)
  - Death [Fatal]
